FAERS Safety Report 11715314 (Version 2)
Quarter: 2015Q4

REPORT INFORMATION
  Report Type: Spontaneous
  Country: US (occurrence: US)
  Receive Date: 20151104
  Receipt Date: 20151110
  Transmission Date: 20160304
  Serious: No
  Sender: FDA-Public Use
  Company Number: US-ELI_LILLY_AND_COMPANY-US201108000744

PATIENT
  Sex: Male

DRUGS (3)
  1. CALCIUM [Concomitant]
     Active Substance: CALCIUM
     Route: 065
  2. BISPHOSPHONATES [Concomitant]
     Active Substance: UNSPECIFIED INGREDIENT
  3. FORTEO [Suspect]
     Active Substance: TERIPARATIDE
     Indication: OSTEOPOROSIS
     Dosage: 20 UG, QD
     Route: 065
     Dates: start: 200403, end: 200603

REACTIONS (1)
  - Bone density decreased [Not Recovered/Not Resolved]
